FAERS Safety Report 23635090 (Version 1)
Quarter: 2024Q1

REPORT INFORMATION
  Report Type: Spontaneous
  Country: CA (occurrence: CA)
  Receive Date: 20240315
  Receipt Date: 20240315
  Transmission Date: 20240410
  Serious: Yes (Other)
  Sender: FDA-Public Use
  Company Number: CA-CELLTRION INC.-2023CA007681

PATIENT

DRUGS (15)
  1. INFLECTRA [Suspect]
     Active Substance: INFLIXIMAB-DYYB
     Indication: Ankylosing spondylitis
     Dosage: 400 MG, W0, W2, W6 AND EVERY8 WEEKS
     Route: 042
     Dates: start: 20230502
  2. INFLECTRA [Suspect]
     Active Substance: INFLIXIMAB-DYYB
     Dosage: 400 MG, W0, W2, W6 AND Q8 WEEKS
     Route: 042
     Dates: start: 20230502
  3. INFLECTRA [Suspect]
     Active Substance: INFLIXIMAB-DYYB
     Dosage: 400 MG, W0, W2, W6 AND EVERY 8 WEEKS
     Route: 042
     Dates: start: 20230517
  4. INFLECTRA [Suspect]
     Active Substance: INFLIXIMAB-DYYB
     Dosage: 400 MG, AFTER 5 WEEKS AND 1 DAY (WEEK 6), SUPPOSED TO RECEIVE 4 WEEKS AFTER LAST DOSE
     Route: 042
     Dates: start: 20230622
  5. INFLECTRA [Suspect]
     Active Substance: INFLIXIMAB-DYYB
     Dosage: 400 MG, AFTER 5 WEEKS AND 1 DAY (WEEK 6), SUPPOSED TO RECEIVE 4 WEEKS AFTER LAST DOSE
     Route: 042
     Dates: start: 20230622
  6. INFLECTRA [Suspect]
     Active Substance: INFLIXIMAB-DYYB
     Dosage: 400 MG W0, W2, W6 AND Q8 WEEKS
     Route: 042
     Dates: start: 20230817
  7. INFLECTRA [Suspect]
     Active Substance: INFLIXIMAB-DYYB
     Dosage: 400 MG, EVERY 6 WEEKS
     Route: 042
     Dates: start: 20231003
  8. INFLECTRA [Suspect]
     Active Substance: INFLIXIMAB-DYYB
     Dosage: 400MG, 8 WEEKS AND 3 DAYS
     Route: 042
     Dates: start: 20231201
  9. INFLECTRA [Suspect]
     Active Substance: INFLIXIMAB-DYYB
     Dosage: 400MG, 8 WEEKS AND 3 DAYS
     Route: 042
     Dates: start: 20231201
  10. INFLECTRA [Suspect]
     Active Substance: INFLIXIMAB-DYYB
     Dosage: 400MG, 8 WEEKS AND 3 DAYS
     Route: 042
     Dates: start: 20231201
  11. INFLECTRA [Suspect]
     Active Substance: INFLIXIMAB-DYYB
     Dosage: 300 MG, EVERY 6 WEEKS
     Route: 042
     Dates: start: 20240123
  12. INFLECTRA [Suspect]
     Active Substance: INFLIXIMAB-DYYB
     Dosage: 300 MG, EVERY 4 WEEKS (6 WEEKS AND 1 DAY)
     Route: 042
     Dates: start: 20240306
  13. SIMPONI [Concomitant]
     Active Substance: GOLIMUMAB
     Dosage: UNK
  14. SIMPONI [Concomitant]
     Active Substance: GOLIMUMAB
     Dosage: UNK
  15. GABAPENTIN [Concomitant]
     Active Substance: GABAPENTIN
     Dosage: UNK

REACTIONS (10)
  - Condition aggravated [Recovered/Resolved]
  - Pruritus [Recovered/Resolved]
  - Arthralgia [Recovering/Resolving]
  - Blood pressure fluctuation [Recovered/Resolved]
  - Stress [Unknown]
  - Off label use [Unknown]
  - Intentional product use issue [Unknown]
  - Off label use [Unknown]
  - Inappropriate schedule of product administration [Unknown]
  - Off label use [Unknown]

NARRATIVE: CASE EVENT DATE: 20230101
